FAERS Safety Report 7507133-1 (Version None)
Quarter: 2011Q2

REPORT INFORMATION
  Report Type: 
  Country: None (occurrence: None)
  Receive Date: 20110526
  Receipt Date: 20110513
  Transmission Date: 20111010
  Serious: Yes (Other)
  Sender: FDA-Public Use
  Company Number: FR-BAXTER-2011BH016048

PATIENT
  Age: 66 Year
  Sex: Male

DRUGS (3)
  1. SODIUM CHLORIDE 0.9% IN PLASTIC CONTAINER [Suspect]
     Indication: HYPOKALAEMIA
     Route: 042
  2. GLYCYRRHIZIC ACID [Suspect]
     Indication: ABSTAINS FROM ALCOHOL
     Route: 048
  3. POTASSIUM CHLORIDE [Concomitant]
     Indication: HYPOKALAEMIA
     Route: 042

REACTIONS (1)
  - ACUTE PULMONARY OEDEMA [None]
